FAERS Safety Report 8042106-4 (Version None)
Quarter: 2012Q1

REPORT INFORMATION
  Report Type: 
  Country: None (occurrence: None)
  Receive Date: 20120112
  Receipt Date: 20120104
  Transmission Date: 20120608
  Serious: Yes (Other)
  Sender: FDA-Public Use
  Company Number: FR-ELI_LILLY_AND_COMPANY-FR201201000819

PATIENT
  Sex: Female

DRUGS (5)
  1. PREDNISONE TAB [Concomitant]
     Dosage: 60 MG, UNK
     Route: 065
  2. PREDNISONE TAB [Concomitant]
     Dosage: 20 MG, EACH MORNING
     Route: 065
  3. CISPLATIN [Concomitant]
     Dosage: UNK, UNKNOWN
     Route: 065
  4. ALIMTA [Suspect]
     Indication: PLEURAL MESOTHELIOMA
     Dosage: 875 MG, UNKNOWN
     Route: 042
     Dates: start: 20110207, end: 20111103
  5. SOLU-MEDROL [Concomitant]
     Indication: PLEURAL MESOTHELIOMA
     Dosage: 40 MG, UNKNOWN
     Route: 042
     Dates: start: 20110207, end: 20111103

REACTIONS (1)
  - INFLAMMATION [None]
